FAERS Safety Report 23626114 (Version 1)
Quarter: 2024Q1

REPORT INFORMATION
  Report Type: Spontaneous
  Country: ES (occurrence: ES)
  Receive Date: 20240313
  Receipt Date: 20240313
  Transmission Date: 20240410
  Serious: Yes (Death, Hospitalization, Other)
  Sender: FDA-Public Use
  Company Number: ES-BRISTOL-MYERS SQUIBB COMPANY-2024-039619

PATIENT
  Age: 74 Year
  Sex: Male

DRUGS (24)
  1. AZACITIDINE [Suspect]
     Active Substance: AZACITIDINE
     Indication: Myelodysplastic syndrome
     Route: 058
     Dates: start: 20220602, end: 20220816
  2. AZACITIDINE [Suspect]
     Active Substance: AZACITIDINE
     Indication: Leukaemia
  3. CIMETIDINE [Concomitant]
     Active Substance: CIMETIDINE
     Indication: Lymphadenitis
     Dosage: 1.0 MG
     Route: 048
     Dates: start: 20181218
  4. LEVOTHYROXINE SODIUM [Concomitant]
     Active Substance: LEVOTHYROXINE SODIUM
     Indication: Thyroid cancer
     Dosage: 50.0 MCG A-SD
     Route: 048
     Dates: start: 20201218
  5. LEVOTHYROXINE SODIUM [Concomitant]
     Active Substance: LEVOTHYROXINE SODIUM
     Indication: Hypothyroidism
     Route: 048
     Dates: start: 20201010
  6. FOLIC ACID [Concomitant]
     Active Substance: FOLIC ACID
     Indication: Blood folate decreased
     Dosage: 5.0 MG A-DE
     Route: 048
     Dates: start: 20211211
  7. FOLIC ACID [Concomitant]
     Active Substance: FOLIC ACID
     Indication: Vitamin D decreased
  8. NOVORAPID [Concomitant]
     Active Substance: INSULIN ASPART
     Indication: Type 2 diabetes mellitus
     Dosage: 4.0 UI; 100 U/ML, 5 PRE-FILLED PENS OF 3 ML
     Route: 058
     Dates: start: 20210323
  9. NOVORAPID [Concomitant]
     Active Substance: INSULIN ASPART
  10. BUDESONIDE\FORMOTEROL [Concomitant]
     Active Substance: BUDESONIDE\FORMOTEROL
     Indication: Lymphadenitis
     Dosage: 1 PUFF
     Route: 050
     Dates: start: 20190320
  11. BUDESONIDE\FORMOTEROL [Concomitant]
     Active Substance: BUDESONIDE\FORMOTEROL
  12. TRANEXAMIC ACID [Concomitant]
     Active Substance: TRANEXAMIC ACID
     Indication: Small intestinal stenosis
     Dosage: 1000.0 MG W/8 HOURS
     Route: 048
     Dates: start: 20220718
  13. TRANEXAMIC ACID [Concomitant]
     Active Substance: TRANEXAMIC ACID
     Indication: Intestinal stenosis
  14. ABILIFY [Concomitant]
     Active Substance: ARIPIPRAZOLE
     Indication: Thyroid cancer
     Dosage: 5.0 MG C/48 HORAS
     Route: 048
     Dates: start: 20210310
  15. ABILIFY [Concomitant]
     Active Substance: ARIPIPRAZOLE
     Indication: Thyroidectomy
  16. INSULIN GLARGINE [Concomitant]
     Active Substance: INSULIN GLARGINE
     Indication: Type 2 diabetes mellitus
     Dosage: 16.0 IU C/24 H
     Route: 058
     Dates: start: 20211202
  17. INSULIN GLARGINE [Concomitant]
     Active Substance: INSULIN GLARGINE
  18. VENLAFAXINE HYDROCHLORIDE [Concomitant]
     Active Substance: VENLAFAXINE HYDROCHLORIDE
     Indication: Thyroid cancer
     Dosage: 150.0 MG DE
     Route: 048
     Dates: start: 20201222
  19. VENLAFAXINE HYDROCHLORIDE [Concomitant]
     Active Substance: VENLAFAXINE HYDROCHLORIDE
  20. CALCIFEDIOL [Concomitant]
     Active Substance: CALCIFEDIOL
     Indication: Vitamin D decreased
     Dosage: 0.266 MG C/15 DAYS
     Route: 048
     Dates: start: 20210825
  21. CALCIFEDIOL [Concomitant]
     Active Substance: CALCIFEDIOL
  22. SULFAMETHOXAZOLE\TRIMETHOPRIM [Concomitant]
     Active Substance: SULFAMETHOXAZOLE\TRIMETHOPRIM
     Indication: Vitamin D decreased
     Route: 048
     Dates: start: 20220712
  23. SULFAMETHOXAZOLE\TRIMETHOPRIM [Concomitant]
     Active Substance: SULFAMETHOXAZOLE\TRIMETHOPRIM
  24. OMEPRAZOLE STADA [Concomitant]
     Indication: Vitamin D decreased
     Route: 048
     Dates: start: 20220407

REACTIONS (1)
  - Febrile neutropenia [Fatal]

NARRATIVE: CASE EVENT DATE: 20220816
